FAERS Safety Report 16521122 (Version 2)
Quarter: 2019Q3

REPORT INFORMATION
  Report Type: Spontaneous
  Country: CA (occurrence: CA)
  Receive Date: 20190702
  Receipt Date: 20190718
  Transmission Date: 20191004
  Serious: Yes (Hospitalization)
  Sender: FDA-Public Use
  Company Number: CA-BIOMARINAP-CA-2019-124460

PATIENT
  Age: 10 Month
  Sex: Male
  Weight: 10.6 kg

DRUGS (2)
  1. FER IN SOL [Concomitant]
     Indication: IRON DEFICIENCY
     Dosage: 1 MILLILITER, QD
     Route: 048
  2. VIMIZIM [Suspect]
     Active Substance: ELOSULFASE ALFA
     Indication: MUCOPOLYSACCHARIDOSIS IV
     Dosage: 20 MILLIGRAM, QW
     Route: 042
     Dates: start: 20190307

REACTIONS (2)
  - Pneumonia [Recovering/Resolving]
  - Cardiac disorder [Recovering/Resolving]

NARRATIVE: CASE EVENT DATE: 20190623
